FAERS Safety Report 14502900 (Version 2)
Quarter: 2018Q1

REPORT INFORMATION
  Report Type: Spontaneous
  Country: IL (occurrence: IL)
  Receive Date: 20180208
  Receipt Date: 20180307
  Transmission Date: 20180509
  Serious: Yes (Other)
  Sender: FDA-Public Use
  Company Number: IL-ROCHE-2063695

PATIENT
  Age: 60 Year
  Sex: Female

DRUGS (1)
  1. KADCYLA [Suspect]
     Active Substance: ADO-TRASTUZUMAB EMTANSINE
     Indication: BREAST CANCER METASTATIC
     Route: 042
     Dates: start: 201609

REACTIONS (5)
  - Splenomegaly [Unknown]
  - Varices oesophageal [Unknown]
  - Transaminases increased [Unknown]
  - Neutropenia [Unknown]
  - Thrombocytopenia [Unknown]
